FAERS Safety Report 4508668-6 (Version None)
Quarter: 2004Q4

REPORT INFORMATION
  Report Type: 
  Country: None (occurrence: None)
  Receive Date: 20041123
  Receipt Date: 20040525
  Transmission Date: 20050328
  Serious: No
  Sender: FDA-Public Use
  Company Number: US-GLAXOSMITHKLINE-A0512067A

PATIENT

DRUGS (1)
  1. WELLBUTRIN [Suspect]

REACTIONS (2)
  - AGITATION [None]
  - THERAPEUTIC RESPONSE DECREASED [None]
